FAERS Safety Report 7315877-X (Version None)
Quarter: 2011Q1

REPORT INFORMATION
  Report Type: 
  Country: None (occurrence: None)
  Receive Date: 20110225
  Receipt Date: 20110224
  Transmission Date: 20110831
  Serious: No
  Sender: FDA-Public Use
  Company Number: GB-ABBOTT-11P-167-0704908-00

PATIENT
  Sex: Female
  Weight: 60.4 kg

DRUGS (3)
  1. PREDNISOLONE [Concomitant]
     Indication: CROHN'S DISEASE
     Dates: start: 20101201
  2. HUMIRA [Suspect]
     Indication: CROHN'S DISEASE
     Route: 058
     Dates: start: 20110101, end: 20110201
  3. ASACOL [Concomitant]
     Indication: PRODUCT USED FOR UNKNOWN INDICATION
     Route: 048

REACTIONS (2)
  - HERPES ZOSTER [None]
  - LYMPHOPENIA [None]
